FAERS Safety Report 17281734 (Version 2)
Quarter: 2020Q1

REPORT INFORMATION
  Report Type: Spontaneous
  Country: US (occurrence: US)
  Receive Date: 20200117
  Receipt Date: 20200120
  Transmission Date: 20200409
  Serious: No
  Sender: FDA-Public Use
  Company Number: US-GILEAD-2020-0447014

PATIENT
  Age: 56 Year
  Sex: Female

DRUGS (20)
  1. FLONASE ALLERGY RELIEF [Concomitant]
     Active Substance: FLUTICASONE PROPIONATE
  2. PREDNISONE. [Concomitant]
     Active Substance: PREDNISONE
  3. LETAIRIS [Suspect]
     Active Substance: AMBRISENTAN
     Indication: PULMONARY ARTERIAL HYPERTENSION
     Dosage: 10 MG, QD
     Route: 065
     Dates: start: 20171004
  4. BENZONATATE. [Concomitant]
     Active Substance: BENZONATATE
  5. DILAUDID [Concomitant]
     Active Substance: HYDROMORPHONE HYDROCHLORIDE
  6. GABAPENTIN. [Concomitant]
     Active Substance: GABAPENTIN
  7. SINGULAIR [Concomitant]
     Active Substance: MONTELUKAST SODIUM
  8. ADVAIR HFA [Concomitant]
     Active Substance: FLUTICASONE PROPIONATE\SALMETEROL XINAFOATE
  9. ASPIRIN (E.C.) [Concomitant]
     Active Substance: ASPIRIN
  10. PERCOCET [OXYCODONE HYDROCHLORIDE;OXYCODONE TEREPHTHALATE;PARACETAMOL] [Concomitant]
     Active Substance: ACETAMINOPHEN\OXYCODONE HYDROCHLORIDE\OXYCODONE TEREPHTHALATE
  11. DILTIAZEM. [Concomitant]
     Active Substance: DILTIAZEM
  12. PANTOPRAZOLE [Concomitant]
     Active Substance: PANTOPRAZOLE
  13. SILDENAFIL. [Concomitant]
     Active Substance: SILDENAFIL
  14. CLARITIN ALLERGIC [Concomitant]
  15. SEROQUEL [Concomitant]
     Active Substance: QUETIAPINE FUMARATE
  16. SPIRIVA [Concomitant]
     Active Substance: TIOTROPIUM BROMIDE MONOHYDRATE
  17. ADCIRCA [Concomitant]
     Active Substance: TADALAFIL
  18. AMOXICILLIN. [Concomitant]
     Active Substance: AMOXICILLIN
  19. PHENYTOIN. [Concomitant]
     Active Substance: PHENYTOIN
  20. ONDANSETRON [Concomitant]
     Active Substance: ONDANSETRON

REACTIONS (2)
  - Malaise [Not Recovered/Not Resolved]
  - Walking disability [Unknown]

NARRATIVE: CASE EVENT DATE: 201906
